FAERS Safety Report 6186317-1 (Version None)
Quarter: 2009Q2

REPORT INFORMATION
  Report Type: 
  Country: None (occurrence: None)
  Receive Date: 20090511
  Receipt Date: 20090429
  Transmission Date: 20091009
  Serious: Yes (Hospitalization, Other)
  Sender: FDA-Public Use
  Company Number: PHHY2009MX16345

PATIENT
  Age: 81 Year
  Sex: Female

DRUGS (5)
  1. DIOVAN HCT [Suspect]
     Indication: HYPERTENSION
     Dosage: 320MG/12.5 MG
     Dates: start: 20081010
  2. PREXIGE [Suspect]
     Dosage: 100 MG, UNK
     Route: 048
     Dates: start: 20081010
  3. VISKEN [Suspect]
     Indication: HYPERTENSION
     Dosage: 5 MG, UNK
     Route: 048
     Dates: start: 20081010
  4. CARBAMAZEPINE [Concomitant]
  5. PHENYTOIN [Concomitant]
     Dosage: UNK
     Dates: start: 20081010

REACTIONS (6)
  - BLOOD GLUCOSE DECREASED [None]
  - FALL [None]
  - FATIGUE [None]
  - HIP FRACTURE [None]
  - SURGERY [None]
  - SYNCOPE [None]
